FAERS Safety Report 12971007 (Version 4)
Quarter: 2019Q2

REPORT INFORMATION
  Report Type: Spontaneous
  Country: US (occurrence: US)
  Receive Date: 20161123
  Receipt Date: 20190522
  Transmission Date: 20190711
  Serious: No
  Sender: FDA-Public Use
  Company Number: US-JAZZ-2016-US-018339

PATIENT
  Sex: Female

DRUGS (20)
  1. LEVAQUIN [Concomitant]
     Active Substance: LEVOFLOXACIN
  2. ZIOPTAN [Concomitant]
     Active Substance: TAFLUPROST
  3. EFFEXOR XR [Concomitant]
     Active Substance: VENLAFAXINE HYDROCHLORIDE
  4. POTASSIUM CHLORIDE. [Concomitant]
     Active Substance: POTASSIUM CHLORIDE
  5. HYDROCORTISONE. [Concomitant]
     Active Substance: HYDROCORTISONE
  6. OXYCODONE HCL IR [Concomitant]
     Active Substance: OXYCODONE HYDROCHLORIDE
  7. TOPAMAX [Concomitant]
     Active Substance: TOPIRAMATE
  8. ROBITUSSIN COUGH AND CHEST CONGESTION DM [Concomitant]
     Active Substance: DEXTROMETHORPHAN HYDROBROMIDE\GUAIFENESIN
  9. ASPIRIN EC [Concomitant]
     Active Substance: ASPIRIN
  10. METHADONE HCL [Concomitant]
     Active Substance: METHADONE HYDROCHLORIDE
  11. PROPRANOLOL [Concomitant]
     Active Substance: PROPRANOLOL HYDROCHLORIDE
  12. XYREM [Suspect]
     Active Substance: SODIUM OXYBATE
     Indication: CATAPLEXY
     Dosage: 4.5 G, BID
     Route: 048
     Dates: start: 201311
  13. BELSOMRA [Suspect]
     Active Substance: SUVOREXANT
     Indication: PRODUCT USED FOR UNKNOWN INDICATION
  14. ENJUVIA [Concomitant]
     Active Substance: ESTROGENS, CONJUGATED SYNTHETIC B
  15. XYREM [Suspect]
     Active Substance: SODIUM OXYBATE
     Indication: NARCOLEPSY
     Dosage: 3 G, BID
     Route: 048
     Dates: start: 201309, end: 201311
  16. CLONAZEPAM. [Concomitant]
     Active Substance: CLONAZEPAM
  17. CLONIDINE HCL [Concomitant]
     Active Substance: CLONIDINE HYDROCHLORIDE
  18. FIORICET [Concomitant]
     Active Substance: ACETAMINOPHEN\BUTALBITAL\CAFFEINE
  19. ESTRACE [Concomitant]
     Active Substance: ESTRADIOL
  20. ROBAXIN-750 [Concomitant]

REACTIONS (3)
  - Intentional product use issue [Unknown]
  - Blood pressure fluctuation [Not Recovered/Not Resolved]
  - Drug ineffective [Unknown]
